FAERS Safety Report 9207797 (Version 2)
Quarter: 2013Q4

REPORT INFORMATION
  Report Type: Spontaneous
  Country: US (occurrence: US)
  Receive Date: 20130403
  Receipt Date: 20131210
  Transmission Date: 20140711
  Serious: Yes (Other)
  Sender: FDA-Public Use
  Company Number: US-BAYER-2013-040732

PATIENT
  Sex: Female

DRUGS (2)
  1. YASMIN [Suspect]
     Dosage: UNK
     Dates: start: 20071226, end: 200809
  2. PREVACID [Concomitant]
     Dosage: UNK
     Route: 048
     Dates: start: 20080919

REACTIONS (5)
  - Injury [None]
  - Pain [None]
  - Pain [None]
  - Biliary dyskinesia [None]
  - Gallbladder disorder [None]
